FAERS Safety Report 7380689-8 (Version None)
Quarter: 2011Q1

REPORT INFORMATION
  Report Type: 
  Country: None (occurrence: None)
  Receive Date: 20110329
  Receipt Date: 20110322
  Transmission Date: 20110831
  Serious: Yes (Other)
  Sender: FDA-Public Use
  Company Number: US-JNJFOC-20110310728

PATIENT

DRUGS (1)
  1. LEVAQUIN [Suspect]
     Indication: PRODUCT USED FOR UNKNOWN INDICATION
     Route: 048

REACTIONS (4)
  - TENDON RUPTURE [None]
  - LIGAMENT RUPTURE [None]
  - LIMB INJURY [None]
  - BACK INJURY [None]
